FAERS Safety Report 5668679-4 (Version None)
Quarter: 2008Q1

REPORT INFORMATION
  Report Type: 
  Country: None (occurrence: None)
  Receive Date: 20080312
  Receipt Date: 20080306
  Transmission Date: 20080703
  Serious: Yes (Hospitalization)
  Sender: FDA-Public Use
  Company Number: E2020-02406-SPO-JP

PATIENT
  Age: 74 Year
  Sex: Male
  Weight: 51 kg

DRUGS (9)
  1. ARICEPT [Suspect]
     Indication: DEMENTIA ALZHEIMER'S TYPE
     Dosage: 5 MG, 1 IN 1 D, ORAL
     Route: 048
     Dates: start: 20080208, end: 20080212
  2. HALOPERIDOL [Suspect]
     Dates: start: 20080208, end: 20080212
  3. ASPIRIN [Concomitant]
  4. ALLOPURINOL [Concomitant]
  5. KNORAMIN        (NIFEDIPINE) [Concomitant]
  6. UBRETID           (DISTIGMINE BROMIDE) [Concomitant]
  7. MARILEON        (NICERGOLINE) [Concomitant]
  8. MAGMITT          (MAGNESIUM OXIDE) [Concomitant]
  9. URSO 250 [Concomitant]

REACTIONS (6)
  - ALTERED STATE OF CONSCIOUSNESS [None]
  - BLOOD CHLORIDE INCREASED [None]
  - BLOOD MAGNESIUM INCREASED [None]
  - BLOOD SODIUM INCREASED [None]
  - HAEMODIALYSIS [None]
  - RENAL FAILURE ACUTE [None]
